FAERS Safety Report 14411172 (Version 1)
Quarter: 2018Q1

REPORT INFORMATION
  Report Type: Spontaneous
  Country: US (occurrence: US)
  Receive Date: 20180117
  Receipt Date: 20180117
  Transmission Date: 20180509
  Serious: No
  Sender: FDA-Public Use
  Company Number: None

PATIENT
  Age: 65 Year
  Sex: Female

DRUGS (1)
  1. CAPECITABINE 500MG WESTWARD [Suspect]
     Active Substance: CAPECITABINE
     Indication: RHEUMATOID ARTHRITIS
     Route: 048
     Dates: start: 20180101

REACTIONS (6)
  - Ocular hyperaemia [None]
  - Weight decreased [None]
  - Abdominal pain [None]
  - Diarrhoea [None]
  - Lacrimation increased [None]
  - Headache [None]

NARRATIVE: CASE EVENT DATE: 20180102
